FAERS Safety Report 12748822 (Version 1)
Quarter: 2016Q3

REPORT INFORMATION
  Report Type: Other
  Country: FR (occurrence: FR)
  Receive Date: 20160915
  Receipt Date: 20160915
  Transmission Date: 20161109
  Serious: Yes (Hospitalization, Other)
  Sender: FDA-Public Use
  Company Number: FR-ASTELLAS-2016US035482

PATIENT
  Age: 68 Year
  Sex: Male

DRUGS (8)
  1. CELLCEPT [Suspect]
     Active Substance: MYCOPHENOLATE MOFETIL\MYCOPHENOLATE MOFETIL HYDROCHLORIDE
     Indication: ORGAN TRANSPLANT
     Dosage: 1000 MG (2 DF OF 500 MG), TWICE DAILY
     Route: 048
     Dates: start: 201604
  2. MECIR LP [Concomitant]
     Active Substance: TAMSULOSIN HYDROCHLORIDE
     Indication: PRODUCT USED FOR UNKNOWN INDICATION
     Dosage: UNK UNK, UNKNOWN FREQ.
     Route: 065
  3. PROGRAF [Suspect]
     Active Substance: TACROLIMUS\TACROLIMUS ANHYDROUS
     Indication: ORGAN TRANSPLANT
     Route: 048
     Dates: start: 201604
  4. BACTRIM [Suspect]
     Active Substance: SULFAMETHOXAZOLE\TRIMETHOPRIM
     Indication: ORGAN TRANSPLANT
     Dosage: 1 DF (400/80 MG), ONCE DAILY (MIDDAY)
     Route: 048
     Dates: start: 201604
  5. CORTANCYL [Suspect]
     Active Substance: PREDNISONE
     Indication: ORGAN TRANSPLANT
     Route: 048
     Dates: start: 201604
  6. INEXIUM                            /01479302/ [Concomitant]
     Active Substance: ESOMEPRAZOLE MAGNESIUM
     Indication: PRODUCT USED FOR UNKNOWN INDICATION
     Dosage: UNK UNK, UNKNOWN FREQ.
     Route: 065
  7. HAVLANE [Concomitant]
     Active Substance: LOPRAZOLAM
     Indication: PRODUCT USED FOR UNKNOWN INDICATION
     Dosage: UNK UNK, UNKNOWN FREQ.
     Route: 065
  8. ROVALCYTE [Suspect]
     Active Substance: VALGANCICLOVIR HYDROCHLORIDE
     Indication: ORGAN TRANSPLANT
     Dosage: 900 MG (2 DF OF 450 MG), TWICE DAILY
     Route: 048
     Dates: start: 201604

REACTIONS (3)
  - Pulmonary embolism [Recovered/Resolved]
  - Thrombosis [Unknown]
  - Phlebitis [Unknown]

NARRATIVE: CASE EVENT DATE: 20160709
